FAERS Safety Report 18223776 (Version 1)
Quarter: 2020Q3

REPORT INFORMATION
  Report Type: Spontaneous
  Country: US (occurrence: US)
  Receive Date: 20200902
  Receipt Date: 20200902
  Transmission Date: 20201103
  Serious: Yes (Other)
  Sender: FDA-Public Use
  Company Number: US-ASTRAZENECA-2020SF12004

PATIENT

DRUGS (6)
  1. LISINOPRIL. [Concomitant]
     Active Substance: LISINOPRIL
  2. BUDESONIDE;FORMOTEROL FUMARATE [Suspect]
     Active Substance: BUDESONIDE\FORMOTEROL FUMARATE
     Indication: PRODUCT USED FOR UNKNOWN INDICATION
     Dosage: 160/4.5 MCG
     Route: 055
  3. FLOVENT [Concomitant]
     Active Substance: FLUTICASONE PROPIONATE
  4. PROAIR HFA [Concomitant]
     Active Substance: ALBUTEROL SULFATE
  5. TUDORZA PRESSAIR [Interacting]
     Active Substance: ACLIDINIUM BROMIDE
     Indication: PRODUCT USED FOR UNKNOWN INDICATION
     Route: 055
     Dates: start: 2020
  6. ATIVAN [Concomitant]
     Active Substance: LORAZEPAM

REACTIONS (10)
  - Eye disorder [Not Recovered/Not Resolved]
  - Oropharyngeal discomfort [Unknown]
  - Drug interaction [Unknown]
  - Basedow^s disease [Not Recovered/Not Resolved]
  - Mumps [Unknown]
  - Thyroiditis [Not Recovered/Not Resolved]
  - Viral infection [Unknown]
  - Panic disorder [Unknown]
  - Vocal cord inflammation [Not Recovered/Not Resolved]
  - Anti-thyroid antibody [Not Recovered/Not Resolved]
